FAERS Safety Report 8828597 (Version 1)
Quarter: 2012Q4

REPORT INFORMATION
  Report Type: 
  Country: US (occurrence: US)
  Receive Date: 20121005
  Receipt Date: 20121005
  Transmission Date: 20130627
  Serious: Yes (Hospitalization)
  Sender: FDA-Public Use
  Company Number: US-SANOFI-AVENTIS-2012SA070854

PATIENT
  Age: 65 Year
  Sex: Male

DRUGS (2)
  1. LANTUS SOLOSTAR [Suspect]
     Indication: TYPE I DIABETES MELLITUS
     Dosage: Dose:66 unit(s)
     Route: 058
     Dates: start: 201203
  2. SOLOSTAR [Suspect]
     Indication: TYPE I DIABETES MELLITUS
     Dates: start: 201203

REACTIONS (1)
  - Pyelonephritis [Unknown]
